FAERS Safety Report 7778216-6 (Version None)
Quarter: 2011Q3

REPORT INFORMATION
  Report Type: 
  Country: None (occurrence: None)
  Receive Date: 20110926
  Receipt Date: 20110921
  Transmission Date: 20111222
  Serious: Yes (Other)
  Sender: FDA-Public Use
  Company Number: US-BAYER-2011-089922

PATIENT
  Sex: Female

DRUGS (5)
  1. COGENTIN [Concomitant]
  2. LACTULOSE [Concomitant]
  3. HALDOL [Concomitant]
  4. NEXAVAR [Suspect]
     Indication: HEPATIC NEOPLASM MALIGNANT NON-RESECTABLE
     Dosage: 200 MG, QD
     Route: 048
     Dates: start: 20110901
  5. KEMPRA [Concomitant]

REACTIONS (5)
  - FATIGUE [None]
  - AMMONIA INCREASED [None]
  - LETHARGY [None]
  - SOMNOLENCE [None]
  - CONSCIOUSNESS FLUCTUATING [None]
